FAERS Safety Report 15242788 (Version 1)
Quarter: 2018Q3

REPORT INFORMATION
  Report Type: Spontaneous
  Country: US (occurrence: US)
  Receive Date: 20180712
  Receipt Date: 20180712
  Transmission Date: 20181010
  Serious: Yes (Hospitalization)
  Sender: FDA-Public Use
  Company Number: None

PATIENT
  Age: 55 Year
  Sex: Female

DRUGS (10)
  1. ADVAIR HFA [Concomitant]
     Active Substance: FLUTICASONE PROPIONATE\SALMETEROL XINAFOATE
  2. MULTIVITAMIN [Concomitant]
     Active Substance: VITAMINS
  3. DIPHEN/ATROP [Concomitant]
     Active Substance: ATROPINE SULFATE\DIPHENOXYLATE
  4. VITAMIN D3 [Concomitant]
     Active Substance: CHOLECALCIFEROL
  5. VITAMIN C [Concomitant]
     Active Substance: ASCORBIC ACID
  6. STELARA [Suspect]
     Active Substance: USTEKINUMAB
     Indication: SKIN DISORDER
     Dosage: ?          OTHER FREQUENCY:Q8W;?
     Route: 058
     Dates: start: 20180220
  7. CALCIUM [Concomitant]
     Active Substance: CALCIUM
  8. PREDNISONE. [Concomitant]
     Active Substance: PREDNISONE
  9. LEVALBUTEROL. [Concomitant]
     Active Substance: LEVALBUTEROL
  10. MESALAMINE. [Concomitant]
     Active Substance: MESALAMINE

REACTIONS (1)
  - Small intestinal obstruction [None]

NARRATIVE: CASE EVENT DATE: 20180710
